FAERS Safety Report 5678478-5 (Version None)
Quarter: 2008Q1

REPORT INFORMATION
  Report Type: 
  Country: None (occurrence: None)
  Receive Date: 20080325
  Receipt Date: 20080317
  Transmission Date: 20080703
  Serious: Yes (Other)
  Sender: FDA-Public Use
  Company Number: FR-JNJFOC-20080107158

PATIENT
  Age: 5 Decade
  Sex: Male
  Weight: 82 kg

DRUGS (8)
  1. REMICADE [Suspect]
     Indication: RHEUMATOID ARTHRITIS
     Route: 042
  2. REMICADE [Suspect]
     Indication: ANKYLOSING SPONDYLITIS
     Route: 042
  3. SOLU-MEDROL [Suspect]
     Indication: PREMEDICATION
  4. CHRONO INDOCID [Concomitant]
     Indication: DRUG USE FOR UNKNOWN INDICATION
  5. POLARAMINE [Concomitant]
     Indication: PREMEDICATION
     Route: 042
  6. CORTANCYL [Concomitant]
     Indication: DRUG USE FOR UNKNOWN INDICATION
     Route: 048
  7. NEXIUM [Concomitant]
     Indication: DRUG USE FOR UNKNOWN INDICATION
     Route: 048
  8. LEVOTHYROXINE SODIUM [Concomitant]
     Indication: DRUG USE FOR UNKNOWN INDICATION
     Route: 048

REACTIONS (7)
  - ABDOMINAL PAIN [None]
  - BACK PAIN [None]
  - DIZZINESS [None]
  - INFUSION RELATED REACTION [None]
  - IRRITABLE BOWEL SYNDROME [None]
  - MALAISE [None]
  - PELVIC PAIN [None]
